FAERS Safety Report 13060682 (Version 1)
Quarter: 2016Q4

REPORT INFORMATION
  Report Type: Spontaneous
  Country: US (occurrence: US)
  Receive Date: 20161225
  Receipt Date: 20161225
  Transmission Date: 20170207
  Serious: Yes (Life-Threatening, Hospitalization, Other)
  Sender: FDA-Public Use
  Company Number: US-009507513-1612USA010393

PATIENT
  Sex: Female

DRUGS (6)
  1. KEYTRUDA [Suspect]
     Active Substance: PEMBROLIZUMAB
     Indication: TRIPLE NEGATIVE BREAST CANCER
     Dosage: 200 MG, Q3W
     Route: 042
     Dates: start: 20161014, end: 20161125
  2. TAXOL [Concomitant]
     Active Substance: PACLITAXEL
  3. LEVAQUIN [Concomitant]
     Active Substance: LEVOFLOXACIN
  4. LISINOPRIL. [Concomitant]
     Active Substance: LISINOPRIL
  5. GLUTAMINE [Concomitant]
     Active Substance: GLUTAMINE
  6. VITAMINS (UNSPECIFIED) [Concomitant]
     Active Substance: VITAMINS

REACTIONS (2)
  - Myocardial infarction [Recovering/Resolving]
  - General physical health deterioration [Recovering/Resolving]
